FAERS Safety Report 9961445 (Version 2)
Quarter: 2014Q1

REPORT INFORMATION
  Report Type: Spontaneous
  Country: GB (occurrence: GB)
  Receive Date: 20140305
  Receipt Date: 20140305
  Transmission Date: 20141002
  Serious: Yes (Death, Hospitalization, Other)
  Sender: FDA-Public Use
  Company Number: GB-PFIZER INC-2013330853

PATIENT
  Age: 98 Year
  Sex: Male

DRUGS (11)
  1. TAZOCIN [Suspect]
     Indication: PNEUMONIA
     Dosage: 4.5 G, 3X/DAY
     Route: 042
     Dates: start: 20131103, end: 20131107
  2. SIMVASTATIN [Concomitant]
     Dosage: UNK
  3. ISOSORBIDE MONONITRATE [Concomitant]
  4. LANSOPRAZOLE [Concomitant]
  5. BISOPROLOL [Concomitant]
     Dosage: UNK
  6. ACETYLSALICYLIC ACID [Concomitant]
     Dosage: UNK
  7. RAMIPRIL [Concomitant]
  8. CALCICHEW-D3 [Concomitant]
  9. FUROSEMIDE [Concomitant]
  10. AMOXICILLIN [Concomitant]
     Dosage: 500 MG, 3X/DAY
     Dates: start: 20131014, end: 201310
  11. CHLORAMPHENICOL [Concomitant]

REACTIONS (2)
  - Death [Fatal]
  - Alanine aminotransferase increased [Not Recovered/Not Resolved]
